FAERS Safety Report 16242323 (Version 1)
Quarter: 2019Q2

REPORT INFORMATION
  Report Type: Spontaneous
  Country: FR (occurrence: FR)
  Receive Date: 20190426
  Receipt Date: 20190426
  Transmission Date: 20190711
  Serious: Yes (Death)
  Sender: FDA-Public Use
  Company Number: FR-ZYDUS-036052

PATIENT
  Age: 83 Year
  Sex: Male
  Weight: 78.9 kg

DRUGS (9)
  1. ATORVASTATIN [Suspect]
     Active Substance: ATORVASTATIN
     Indication: MYOCARDIAL ISCHAEMIA
     Route: 048
     Dates: start: 201901
  2. BISOPROLOL (HEMIFUMARATE DE) [Suspect]
     Active Substance: BISOPROLOL FUMARATE
     Indication: HYPERTENSION
     Dosage: 2.5 MG, SCORED FILM-COATED TABLET
     Route: 048
     Dates: start: 201901
  3. APIXABAN [Suspect]
     Active Substance: APIXABAN
     Indication: MYOCARDIAL ISCHAEMIA
     Dosage: 5 MG FILM-COATED TABLETS
     Route: 048
     Dates: start: 201901
  4. AMIODARONE [Suspect]
     Active Substance: AMIODARONE
     Indication: MYOCARDIAL ISCHAEMIA
     Dosage: 200 MG, SCORED TABLET
     Route: 048
     Dates: start: 201901
  5. PARACETAMOL [Suspect]
     Active Substance: ACETAMINOPHEN
     Indication: PAIN
     Route: 048
     Dates: start: 201901
  6. CIPROFLOXACIN. [Suspect]
     Active Substance: CIPROFLOXACIN
     Indication: INFECTION
     Dosage: 2 / J THEN 0.5CP 2 / D
     Route: 048
     Dates: start: 20190322, end: 20190329
  7. ACETYLSALICYLIC ACID [Suspect]
     Active Substance: ASPIRIN
     Indication: MYOCARDIAL ISCHAEMIA
     Dosage: 75 MG POWDER FOR ORAL SOLUTION IN A SACHET
     Route: 048
     Dates: start: 201901
  8. TRAMADOL. [Suspect]
     Active Substance: TRAMADOL
     Indication: PAIN
     Route: 048
     Dates: start: 201901
  9. PANTOPRAZOLE [Suspect]
     Active Substance: PANTOPRAZOLE
     Indication: ULCER HAEMORRHAGE
     Route: 048
     Dates: start: 201901

REACTIONS (4)
  - Gastric ulcer perforation [Fatal]
  - Gastric haemorrhage [Fatal]
  - Rectal haemorrhage [Fatal]
  - Shock haemorrhagic [Fatal]

NARRATIVE: CASE EVENT DATE: 201902
